FAERS Safety Report 19238599 (Version 3)
Quarter: 2021Q3

REPORT INFORMATION
  Report Type: Spontaneous
  Country: US (occurrence: US)
  Receive Date: 20210510
  Receipt Date: 20210709
  Transmission Date: 20211014
  Serious: No
  Sender: FDA-Public Use
  Company Number: US-BIOGEN-2011BI023916

PATIENT
  Sex: Female

DRUGS (1)
  1. TYSABRI [Suspect]
     Active Substance: NATALIZUMAB
     Indication: MULTIPLE SCLEROSIS
     Dosage: INFUSED OVER 1 HOUR
     Route: 042
     Dates: start: 20090717, end: 20111118

REACTIONS (3)
  - Cognitive disorder [Not Recovered/Not Resolved]
  - Limb mass [Not Recovered/Not Resolved]
  - Lipoma of breast [Recovered/Resolved]

NARRATIVE: CASE EVENT DATE: 2009
